FAERS Safety Report 5731741-1 (Version None)
Quarter: 2008Q2

REPORT INFORMATION
  Report Type: 
  Country: None (occurrence: None)
  Receive Date: 20080508
  Receipt Date: 20080505
  Transmission Date: 20081010
  Serious: Yes (Hospitalization)
  Sender: FDA-Public Use
  Company Number: FR-AVENTIS-200812002EU

PATIENT
  Age: 69 Year
  Sex: Female

DRUGS (1)
  1. INDAPAMIDE [Suspect]
     Indication: HYPERTENSION
     Dosage: DOSE: UNK
     Route: 048
     Dates: start: 20080201, end: 20080201

REACTIONS (2)
  - RASH [None]
  - RESPIRATORY DISORDER [None]
